FAERS Safety Report 6508181-0 (Version None)
Quarter: 2009Q4

REPORT INFORMATION
  Report Type: 
  Country: None (occurrence: None)
  Receive Date: 20091221
  Receipt Date: 20081219
  Transmission Date: 20100525
  Serious: No
  Sender: FDA-Public Use
  Company Number: US-ASTRAZENECA-2008UW28495

PATIENT
  Age: 65 Year
  Sex: Male
  Weight: 110.7 kg

DRUGS (5)
  1. CRESTOR [Suspect]
     Indication: BLOOD CHOLESTEROL INCREASED
     Route: 048
  2. METOPROLOL TARTRATE [Concomitant]
     Route: 048
  3. CO Q10 [Concomitant]
  4. DIOVAN [Concomitant]
  5. ASPIRIN [Concomitant]

REACTIONS (2)
  - GAIT DISTURBANCE [None]
  - MYALGIA [None]
